FAERS Safety Report 20355491 (Version 2)
Quarter: 2022Q1

REPORT INFORMATION
  Report Type: Spontaneous
  Country: US (occurrence: US)
  Receive Date: 20220120
  Receipt Date: 20220128
  Transmission Date: 20220423
  Serious: Yes (Hospitalization)
  Sender: FDA-Public Use
  Company Number: US-BEH-2022140582

PATIENT
  Age: 65 Year
  Sex: Female

DRUGS (2)
  1. PRIVIGEN [Suspect]
     Active Substance: HUMAN IMMUNOGLOBULIN G
     Indication: Immunodeficiency
     Dosage: 30 GRAM
     Route: 042
     Dates: start: 20220104, end: 20220104
  2. PRIVIGEN [Suspect]
     Active Substance: HUMAN IMMUNOGLOBULIN G
     Dosage: 30 GRAM
     Route: 042
     Dates: start: 20220104, end: 20220104

REACTIONS (7)
  - Erythema [Recovered/Resolved]
  - Rash erythematous [Recovered/Resolved]
  - Ocular hyperaemia [Recovered/Resolved]
  - Flushing [Recovered/Resolved]
  - Dyspnoea [Recovering/Resolving]
  - Tachypnoea [Recovered/Resolved]
  - Oxygen saturation decreased [Recovered/Resolved]

NARRATIVE: CASE EVENT DATE: 20220104
